FAERS Safety Report 6764242-2 (Version None)
Quarter: 2010Q2

REPORT INFORMATION
  Report Type: 
  Country: None (occurrence: None)
  Receive Date: 20100608
  Receipt Date: 20100514
  Transmission Date: 20101027
  Serious: Yes (Death, Hospitalization)
  Sender: FDA-Public Use
  Company Number: 15109580

PATIENT
  Age: 14 Year
  Sex: Female

DRUGS (4)
  1. SPRYCEL [Suspect]
     Indication: EWING'S SARCOMA
     Dosage: 50 MILLIGRAM 2/1 DAY ORAL
     Route: 048
     Dates: start: 20100216, end: 20100303
  2. CARBOPLATIN [Suspect]
     Indication: EWING'S SARCOMA
     Dosage: IV
     Route: 042
  3. IFOSFAMIDE [Suspect]
     Indication: EWING'S SARCOMA
     Dosage: 2520 MILLIGRAM 1 DAY IV
     Route: 042
     Dates: start: 20100211, end: 20100215
  4. ETOPOSIDE [Suspect]
     Indication: EWING'S SARCOMA
     Dosage: IV
     Route: 042

REACTIONS (20)
  - BRAIN HERNIATION [None]
  - BRAIN STEM SYNDROME [None]
  - CEREBRAL FUNGAL INFECTION [None]
  - CEREBRAL INFARCTION [None]
  - DEPRESSED LEVEL OF CONSCIOUSNESS [None]
  - ELECTROENCEPHALOGRAM ABNORMAL [None]
  - HYDROCEPHALUS [None]
  - LUNG CONSOLIDATION [None]
  - METASTASES TO CENTRAL NERVOUS SYSTEM [None]
  - NAUSEA [None]
  - NEUTROPENIA [None]
  - PLEURAL EFFUSION [None]
  - PNEUMOTHORAX [None]
  - PULSE PRESSURE ABNORMAL [None]
  - PUPIL FIXED [None]
  - PUPILS UNEQUAL [None]
  - SEPSIS [None]
  - SOMNOLENCE [None]
  - VOMITING [None]
  - ZYGOMYCOSIS [None]
